FAERS Safety Report 7722718-5 (Version None)
Quarter: 2011Q3

REPORT INFORMATION
  Report Type: 
  Country: None (occurrence: None)
  Receive Date: 20110831
  Receipt Date: 20110822
  Transmission Date: 20111222
  Serious: Yes (Hospitalization, Disabling, Other)
  Sender: FDA-Public Use
  Company Number: US-ASTRAZENECA-2011SE34483

PATIENT
  Age: 55 Year
  Sex: Female

DRUGS (1)
  1. SEROQUEL [Suspect]
     Route: 048

REACTIONS (9)
  - DUPUYTREN'S CONTRACTURE [None]
  - TENDONITIS [None]
  - MENTAL DISORDER [None]
  - HALLUCINATION, AUDITORY [None]
  - BIPOLAR DISORDER [None]
  - PAIN [None]
  - PARANOIA [None]
  - OVERDOSE [None]
  - BURSITIS [None]
